FAERS Safety Report 8905430 (Version 2)
Quarter: 2012Q4

REPORT INFORMATION
  Report Type: Report from Study
  Country: US (occurrence: US)
  Receive Date: 20121113
  Receipt Date: 20121120
  Transmission Date: 20130627
  Serious: Yes (Hospitalization)
  Sender: FDA-Public Use
  Company Number: US-US-EMD SERONO, INC.-7172889

PATIENT
  Age: 51 Year
  Sex: Female

DRUGS (4)
  1. REBIF [Suspect]
     Indication: MULTIPLE SCLEROSIS
     Route: 058
     Dates: start: 20110518
  2. REBIF [Suspect]
     Route: 058
  3. REBIF [Suspect]
     Route: 058
  4. LISINOPRIL [Concomitant]
     Indication: HYPERTENSION

REACTIONS (9)
  - Small intestinal obstruction [Recovering/Resolving]
  - Blood pressure increased [Unknown]
  - Pain in extremity [Unknown]
  - Scar [Not Recovered/Not Resolved]
  - Depression [Recovering/Resolving]
  - Injection site erythema [Recovered/Resolved]
  - Injection site pain [Not Recovered/Not Resolved]
  - Injection site nodule [Unknown]
  - Inappropriate schedule of drug administration [Recovered/Resolved]
